FAERS Safety Report 6389905-2 (Version None)
Quarter: 2009Q4

REPORT INFORMATION
  Report Type: 
  Country: None (occurrence: None)
  Receive Date: 20091006
  Receipt Date: 20090317
  Transmission Date: 20100525
  Serious: No
  Sender: FDA-Public Use
  Company Number: US-BRISTOL-MYERS SQUIBB COMPANY-14547673

PATIENT
  Age: 69 Year
  Sex: Female
  Weight: 62 kg

DRUGS (2)
  1. AVAPRO [Suspect]
     Indication: HYPERTENSION
     Dosage: INCREASE TO 300 MG ONCE DAILY
     Dates: start: 19990101, end: 20000101
  2. VITAMINS + MINERALS [Concomitant]

REACTIONS (1)
  - BURNING SENSATION [None]
